FAERS Safety Report 7226853-X (Version None)
Quarter: 2011Q1

REPORT INFORMATION
  Report Type: 
  Country: None (occurrence: None)
  Receive Date: 20110114
  Receipt Date: 20110104
  Transmission Date: 20110831
  Serious: Yes (Other)
  Sender: FDA-Public Use
  Company Number: CA-NOVOPROD-321177

PATIENT
  Age: 13 Year
  Sex: Male

DRUGS (5)
  1. SPIRONOLACTONE W/ HYDROCHLOROTHIAZIDE [Concomitant]
     Dosage: LOW-DOSE
  2. NORDITROPIN [Suspect]
     Indication: GROWTH HORMONE DEFICIENCY
     Dosage: 0.18 MG/KG/WEEK
  3. NORDITROPIN [Suspect]
     Dosage: 0.24MG/KG/WEEK
  4. SPIRONOLACTONE [Concomitant]
     Dosage: 3-4MG/KG/DAY
  5. SPIRONOLACTONE W/ HYDROCHLOROTHIAZIDE [Concomitant]
     Dosage: 1-3 MG/KG/DAY

REACTIONS (3)
  - PROTEIN-LOSING GASTROENTEROPATHY [None]
  - DRUG INTERACTION [None]
  - CONDITION AGGRAVATED [None]
